FAERS Safety Report 22531601 (Version 1)
Quarter: 2023Q2

REPORT INFORMATION
  Report Type: Spontaneous
  Country: JP (occurrence: JP)
  Receive Date: 20230607
  Receipt Date: 20230607
  Transmission Date: 20230721
  Serious: Yes (Death, Hospitalization)
  Sender: FDA-Public Use
  Company Number: JP-HISAMITSU PHARMACEUTICAL CO., INC.-2023-NOV-JP000593

PATIENT
  Age: 32 Year
  Sex: Male

DRUGS (2)
  1. ASENAPINE [Suspect]
     Active Substance: ASENAPINE
     Indication: Schizophrenia
     Dosage: 10 MG/DAY
     Route: 060
  2. ASENAPINE [Suspect]
     Active Substance: ASENAPINE
     Dosage: 20 MG/DAY
     Route: 060

REACTIONS (4)
  - Fall [Fatal]
  - Completed suicide [Fatal]
  - Sleep disorder [Unknown]
  - Depressed mood [Unknown]
